FAERS Safety Report 4818700-8 (Version None)
Quarter: 2005Q4

REPORT INFORMATION
  Report Type: 
  Country: None (occurrence: None)
  Receive Date: 20051102
  Receipt Date: 20050902
  Transmission Date: 20060501
  Serious: Yes (Hospitalization, Disabling)
  Sender: FDA-Public Use
  Company Number: US-MERCK-0509USA00525

PATIENT
  Age: 77 Year
  Sex: Female

DRUGS (13)
  1. VIOXX [Suspect]
     Indication: BACK PAIN
     Route: 048
     Dates: start: 20000204, end: 20030101
  2. VIOXX [Suspect]
     Route: 048
     Dates: start: 20030722, end: 20030101
  3. VIOXX [Suspect]
     Route: 048
     Dates: start: 20030805, end: 20040927
  4. VIOXX [Suspect]
     Indication: SPINAL COLUMN STENOSIS
     Route: 048
     Dates: start: 20000204, end: 20030101
  5. VIOXX [Suspect]
     Route: 048
     Dates: start: 20030722, end: 20030101
  6. VIOXX [Suspect]
     Route: 048
     Dates: start: 20030805, end: 20040927
  7. PREMARIN [Concomitant]
     Route: 048
  8. FOSAMAX [Concomitant]
     Route: 065
  9. HYDROCODONE BITARTRATE + ACETAMINOPHEN [Concomitant]
     Route: 048
  10. CALCIUM (UNSPECIFIED) [Concomitant]
     Route: 048
  11. VITAMIN E [Concomitant]
     Route: 048
  12. ASCORBIC ACID [Concomitant]
     Route: 048
  13. VASOTEC [Suspect]
     Route: 048
     Dates: start: 20030101, end: 20030121

REACTIONS (15)
  - ACUTE MYOCARDIAL INFARCTION [None]
  - ANXIETY [None]
  - AORTIC VALVE INCOMPETENCE [None]
  - BACK DISORDER [None]
  - BLOOD PRESSURE INCREASED [None]
  - CARDIAC FAILURE CONGESTIVE [None]
  - CORONARY ARTERY DISEASE [None]
  - DIASTOLIC DYSFUNCTION [None]
  - HYPERTENSION [None]
  - HYPOKALAEMIA [None]
  - HYPOMAGNESAEMIA [None]
  - HYPONATRAEMIA [None]
  - MITRAL VALVE INCOMPETENCE [None]
  - NAUSEA [None]
  - NON-CARDIAC CHEST PAIN [None]
